FAERS Safety Report 6035002-5 (Version None)
Quarter: 2009Q1

REPORT INFORMATION
  Report Type: 
  Country: None (occurrence: None)
  Receive Date: 20090109
  Receipt Date: 20090109
  Transmission Date: 20090719
  Serious: Yes (Other)
  Sender: FDA-Public Use
  Company Number: None

PATIENT
  Age: 50 Year
  Sex: Female
  Weight: 54.4316 kg

DRUGS (1)
  1. PERIO RX STANDARD STRENGTH? DISCUS DENTAL [Suspect]
     Indication: GINGIVITIS

REACTIONS (4)
  - AGEUSIA [None]
  - BURNING SENSATION [None]
  - PAIN [None]
  - TONGUE DISCOLOURATION [None]
